FAERS Safety Report 23357961 (Version 1)
Quarter: 2024Q1

REPORT INFORMATION
  Report Type: Other
  Country: US (occurrence: None)
  Receive Date: 20240102
  Receipt Date: 20240102
  Transmission Date: 20240410
  Serious: Yes (Other)
  Sender: FDA-Public Use
  Company Number: US-Nivagen-000088

PATIENT
  Age: 44 Year
  Sex: Male

DRUGS (2)
  1. TEMOZOLOMIDE [Suspect]
     Active Substance: TEMOZOLOMIDE
     Indication: Astrocytoma
     Dosage: 75 ONCE A DAY,6 WEEK ON/2?WEEK OFF
  2. OLAPARIB [Suspect]
     Active Substance: OLAPARIB
     Indication: Astrocytoma
     Dosage: 150 MILLIGRAM 3 TIMES PER 1 WEEK

REACTIONS (2)
  - Astrocytoma [Unknown]
  - Disease progression [Unknown]
